FAERS Safety Report 19727981 (Version 1)
Quarter: 2021Q3

REPORT INFORMATION
  Report Type: Spontaneous
  Country: US (occurrence: US)
  Receive Date: 20210820
  Receipt Date: 20210820
  Transmission Date: 20211014
  Serious: Yes (Other)
  Sender: FDA-Public Use
  Company Number: US-GLAXOSMITHKLINE-US2021172417

PATIENT
  Age: 64 Year
  Sex: Female

DRUGS (2)
  1. SHINGRIX [Suspect]
     Active Substance: RECOMBINANT VARICELLA ZOSTER VIRUS (VZV) GLYCOPROTEIN E
     Indication: PROPHYLAXIS
     Dates: start: 20210801
  2. ACYCLOVIR. [Suspect]
     Active Substance: ACYCLOVIR
     Indication: ULCERATIVE KERATITIS
     Dosage: UNK
     Dates: start: 20210812

REACTIONS (13)
  - Photophobia [Not Recovered/Not Resolved]
  - Visual impairment [Not Recovered/Not Resolved]
  - Impaired work ability [Not Recovered/Not Resolved]
  - Eye pain [Recovering/Resolving]
  - Pain in extremity [Not Recovered/Not Resolved]
  - Ophthalmoplegia [Unknown]
  - Ophthalmic herpes zoster [Unknown]
  - Gait inability [Not Recovered/Not Resolved]
  - Ulcerative keratitis [Not Recovered/Not Resolved]
  - Eyelid function disorder [Unknown]
  - Superficial injury of eye [Not Recovered/Not Resolved]
  - Vision blurred [Not Recovered/Not Resolved]
  - Blindness unilateral [Not Recovered/Not Resolved]

NARRATIVE: CASE EVENT DATE: 20210810
